FAERS Safety Report 9350628 (Version 1)
Quarter: 2013Q2

REPORT INFORMATION
  Report Type: Spontaneous
  Country: US (occurrence: US)
  Receive Date: 20130617
  Receipt Date: 20130617
  Transmission Date: 20140414
  Serious: Yes (Other)
  Sender: FDA-Public Use
  Company Number: US-009507513-1306USA005471

PATIENT
  Age: 58 Year
  Sex: Female

DRUGS (7)
  1. ZETIA [Suspect]
     Indication: BLOOD CHOLESTEROL
     Dosage: 10 MG, UNK
     Route: 048
  2. LANTUS [Concomitant]
  3. JANUVIA [Concomitant]
  4. ENALAPRIL MALEATE [Concomitant]
  5. METOPROLOL [Concomitant]
  6. VICOPROFEN [Concomitant]
  7. LIPITOR [Concomitant]

REACTIONS (1)
  - Pancreatitis [Recovering/Resolving]
